FAERS Safety Report 4978406-1 (Version None)
Quarter: 2006Q2

REPORT INFORMATION
  Report Type: 
  Country: None (occurrence: None)
  Receive Date: 20060417
  Receipt Date: 20060403
  Transmission Date: 20061013
  Serious: Yes (Hospitalization)
  Sender: FDA-Public Use
  Company Number: FABR-11153

PATIENT
  Age: 56 Year
  Sex: Male
  Weight: 55 kg

DRUGS (15)
  1. FABRAZYME [Suspect]
     Indication: FABRY'S DISEASE
     Dosage: 55 MG Q2WKS IV
     Route: 042
     Dates: start: 20041105, end: 20050606
  2. AMEZINIUM METILSULFATE [Concomitant]
  3. ACETAMINOPHEN [Concomitant]
  4. HYDROXYZINE PAMOATE [Concomitant]
  5. METHYLPREDNISOLONE 4MG TAB [Concomitant]
  6. ETILEFRINE HYDROCHLORIDE [Concomitant]
  7. DOPAMINE HCL [Concomitant]
  8. WARFARIN POTASSIUM [Concomitant]
  9. ALFACALCIDOL [Concomitant]
  10. ALLOPURINOL [Concomitant]
  11. PRECIPITATED CALCIUM CARBONATE [Concomitant]
  12. SENNOSIDE [Concomitant]
  13. FUROSEMIDE [Concomitant]
  14. MIDODRINE HYDROCHLORIDE [Concomitant]
  15. TOCOPHEROL CONCENTRATE CAP [Concomitant]

REACTIONS (2)
  - HYPOTENSION [None]
  - PERITONEAL DIALYSIS [None]
